FAERS Safety Report 7370357-0 (Version None)
Quarter: 2011Q1

REPORT INFORMATION
  Report Type: 
  Country: None (occurrence: None)
  Receive Date: 20110323
  Receipt Date: 20110309
  Transmission Date: 20110831
  Serious: Yes (Disabling)
  Sender: FDA-Public Use
  Company Number: GB-MYLANLABS-2011S1004696

PATIENT
  Age: 72 Year
  Sex: Male

DRUGS (1)
  1. GABAPENTIN [Suspect]
     Indication: RESTLESS LEGS SYNDROME
     Route: 048
     Dates: start: 20101020, end: 20110301

REACTIONS (3)
  - GAIT DISTURBANCE [None]
  - MUSCLE SPASMS [None]
  - CONDITION AGGRAVATED [None]
